FAERS Safety Report 4939243-7 (Version None)
Quarter: 2006Q1

REPORT INFORMATION
  Report Type: 
  Country: None (occurrence: None)
  Receive Date: 20060309
  Receipt Date: 20060309
  Transmission Date: 20060701
  Serious: Yes (Life-Threatening, Other)
  Sender: FDA-Public Use
  Company Number: None

PATIENT
  Sex: Female

DRUGS (1)
  1. NEOSPORIN [Suspect]
     Indication: LACERATION
     Dosage: SMALL AMOUNT ONE TIME TOPICAL
     Route: 061
     Dates: start: 20050801

REACTIONS (2)
  - ANGIONEUROTIC OEDEMA [None]
  - URTICARIA GENERALISED [None]
